FAERS Safety Report 4356152-5 (Version None)
Quarter: 2004Q2

REPORT INFORMATION
  Report Type: 
  Country: None (occurrence: None)
  Receive Date: 20040506
  Receipt Date: 20040427
  Transmission Date: 20050107
  Serious: Yes (Hospitalization, Disabling, Other)
  Sender: FDA-Public Use
  Company Number: 2004210945CH

PATIENT
  Sex: Male
  Weight: 1.6 kg

DRUGS (1)
  1. FRAGMIN [Suspect]
     Indication: THROMBOSIS PROPHYLAXIS
     Dosage: 15000 U, DAILY
     Dates: end: 20040311

REACTIONS (7)
  - BLOOD FIBRINOGEN DECREASED [None]
  - CALCINOSIS [None]
  - CEREBRAL HAEMORRHAGE FOETAL [None]
  - COAGULATION FACTOR XII LEVEL DECREASED [None]
  - DRUG EXPOSURE DURING PREGNANCY [None]
  - FIBRIN D DIMER INCREASED [None]
  - PREMATURE BABY [None]
